FAERS Safety Report 4330964-6 (Version None)
Quarter: 2004Q1

REPORT INFORMATION
  Report Type: 
  Country: None (occurrence: None)
  Receive Date: 20040331
  Receipt Date: 20040322
  Transmission Date: 20041129
  Serious: Yes (Other)
  Sender: FDA-Public Use
  Company Number: 2004205111US

PATIENT
  Sex: Female

DRUGS (5)
  1. ALDACTONE [Suspect]
     Dates: start: 19860101
  2. DYAZIDE [Concomitant]
  3. LASIX [Concomitant]
  4. SYNTHROID [Concomitant]
  5. SLOW-K [Concomitant]

REACTIONS (3)
  - ADENOMA BENIGN [None]
  - BREAST CANCER FEMALE [None]
  - PAIN IN EXTREMITY [None]
